FAERS Safety Report 8492327-1 (Version None)
Quarter: 2012Q3

REPORT INFORMATION
  Report Type: 
  Country: None (occurrence: None)
  Receive Date: 20120706
  Receipt Date: 20120629
  Transmission Date: 20120928
  Serious: Yes (Other)
  Sender: FDA-Public Use
  Company Number: NO-BAYER-2012-059263

PATIENT
  Age: 47 Year
  Sex: Female

DRUGS (3)
  1. MIRENA [Suspect]
     Dosage: 20 MCG/24HR, CONT
     Route: 015
     Dates: start: 20120614, end: 20120614
  2. MIRENA [Suspect]
     Dosage: 20 MCG/24HR, CONT
     Route: 015
     Dates: start: 20050101, end: 20120614
  3. MIRENA [Suspect]
     Dosage: 20 MCG/24HR, CONT
     Route: 015
     Dates: start: 20120614

REACTIONS (6)
  - DEVICE DIFFICULT TO USE [None]
  - NO ADVERSE EVENT [None]
  - GENITAL DISCHARGE [None]
  - MENORRHAGIA [None]
  - VULVOVAGINITIS STREPTOCOCCAL [None]
  - DYSMENORRHOEA [None]
